FAERS Safety Report 4458942-7 (Version None)
Quarter: 2004Q3

REPORT INFORMATION
  Report Type: 
  Country: None (occurrence: None)
  Receive Date: 20040923
  Receipt Date: 20040923
  Transmission Date: 20050211
  Serious: Yes (Other)
  Sender: FDA-Public Use
  Company Number: None

PATIENT
  Age: 64 Year
  Sex: Male
  Weight: 78.5 kg

DRUGS (2)
  1. PRIMAQUINE TAB [Suspect]
     Indication: PNEUMOCYSTIS CARINII PNEUMONIA
     Dosage: 26.3 MG QDAY PO
     Route: 048
     Dates: start: 20040707, end: 20040717
  2. SEPTRA [Suspect]
     Dosage: 80 MG (TMP) IV
     Route: 042
     Dates: start: 20040623, end: 20040718

REACTIONS (1)
  - ACQUIRED METHAEMOGLOBINAEMIA [None]
